FAERS Safety Report 13801749 (Version 3)
Quarter: 2017Q4

REPORT INFORMATION
  Report Type: Report from Study
  Country: CA (occurrence: CA)
  Receive Date: 20170727
  Receipt Date: 20171013
  Transmission Date: 20180320
  Serious: Yes (Death, Hospitalization, Other)
  Sender: FDA-Public Use
  Company Number: CA-BAYER-2017-113833

PATIENT
  Age: 63 Year
  Sex: Female

DRUGS (3)
  1. STIVARGA [Suspect]
     Active Substance: REGORAFENIB
     Indication: COLON CANCER METASTATIC
     Dosage: 120 MG, QD
     Route: 048
     Dates: start: 20170602, end: 20170611
  2. STIVARGA [Suspect]
     Active Substance: REGORAFENIB
     Indication: COLON CANCER METASTATIC
     Dosage: 80 MG, QD
  3. STIVARGA [Suspect]
     Active Substance: REGORAFENIB
     Indication: COLON CANCER METASTATIC
     Dosage: 40 MG, QOD

REACTIONS (7)
  - Asthenia [None]
  - Palmar-plantar erythrodysaesthesia syndrome [None]
  - Colon cancer metastatic [Fatal]
  - Back pain [None]
  - Blister [Not Recovered/Not Resolved]
  - Intestinal obstruction [Recovered/Resolved]
  - Ileus [None]

NARRATIVE: CASE EVENT DATE: 201706
